FAERS Safety Report 4701498-1 (Version None)
Quarter: 2005Q2

REPORT INFORMATION
  Report Type: 
  Country: None (occurrence: None)
  Receive Date: 20050627
  Receipt Date: 20050613
  Transmission Date: 20051028
  Serious: Yes (Hospitalization)
  Sender: FDA-Public Use
  Company Number: HQWYE456014JUN05

PATIENT
  Age: 18 Month
  Sex: Male

DRUGS (5)
  1. CHILDREN'S ADVIL [Suspect]
     Indication: PYREXIA
     Dosage: ORAL
     Route: 048
     Dates: start: 20050304, end: 20050310
  2. CHILDREN'S ADVIL [Suspect]
     Indication: RHINORRHOEA
     Dosage: ORAL
     Route: 048
     Dates: start: 20050304, end: 20050310
  3. CELESTONE [Suspect]
     Indication: COUGH
     Dates: start: 20050310
  4. CELESTONE [Suspect]
     Indication: PYREXIA
     Dates: start: 20050310
  5. AMOXICILLIN TRIHYDRATE [Concomitant]

REACTIONS (14)
  - BACTERIA URINE IDENTIFIED [None]
  - DECREASED APPETITE [None]
  - ENTEROBACTER INFECTION [None]
  - HAEMATOCRIT DECREASED [None]
  - HAEMOGLOBIN DECREASED [None]
  - HEART RATE INCREASED [None]
  - MEAN CELL VOLUME DECREASED [None]
  - MEDIASTINAL DISORDER [None]
  - OTITIS MEDIA ACUTE [None]
  - PLATELET COUNT INCREASED [None]
  - PLEURAL DISORDER [None]
  - PLEURISY [None]
  - PNEUMONIA PNEUMOCOCCAL [None]
  - PNEUMOTHORAX [None]
